FAERS Safety Report 19889124 (Version 1)
Quarter: 2021Q3

REPORT INFORMATION
  Report Type: Spontaneous
  Country: GB (occurrence: GB)
  Receive Date: 20210927
  Receipt Date: 20210927
  Transmission Date: 20211014
  Serious: Yes (Other)
  Sender: FDA-Public Use
  Company Number: GB-ALLERGAN-2132984US

PATIENT
  Sex: Female
  Weight: 108 kg

DRUGS (22)
  1. FOSFOMYCIN TROMETHAMINE ? BP [Suspect]
     Active Substance: FOSFOMYCIN TROMETHAMINE
     Indication: PRODUCT USED FOR UNKNOWN INDICATION
     Dosage: UNK
     Dates: start: 20210828
  2. PARACETAMOL [Concomitant]
     Active Substance: ACETAMINOPHEN
     Dosage: 1 OR 2 FOUR TIMES PER DAY
     Dates: start: 20210714, end: 20210809
  3. TROSPIUM [Concomitant]
     Active Substance: TROSPIUM
     Dosage: 1 DF, BID
     Dates: start: 20200922, end: 20210709
  4. MIRABEGRON [Concomitant]
     Active Substance: MIRABEGRON
     Dosage: 1 DF ONCE DAILY
     Dates: start: 20201022, end: 20210709
  5. MORPHINE SULFATE. [Concomitant]
     Active Substance: MORPHINE SULFATE
     Indication: BREAKTHROUGH PAIN
     Dosage: 2.5 MLS AS REQUIRED
     Dates: start: 20210112, end: 20210712
  6. PHENOXYMETHYLPENICILLIN [Concomitant]
     Active Substance: PENICILLIN V
     Dosage: 2 TABLETS FOUR TIMES PER DAY
     Dates: start: 20210701, end: 20210708
  7. SODIUM ALGINATE [Concomitant]
     Active Substance: SODIUM ALGINATE
     Dosage: 5ML ? 10ML FOUR TIMES PER DAY
     Dates: start: 20210708, end: 20210709
  8. FOSFOMYCIN TROMETHAMINE ? BP [Suspect]
     Active Substance: FOSFOMYCIN TROMETHAMINE
     Indication: PRODUCT USED FOR UNKNOWN INDICATION
     Dosage: 3G IMMEDIATELY AND REPEAT IN 72 HRS
     Dates: start: 20210809, end: 20210812
  9. FEXOFENADINE [Concomitant]
     Active Substance: FEXOFENADINE HYDROCHLORIDE
     Dosage: 1 DF ONCE DAILY
     Dates: start: 20210827
  10. PROCHLORPERAZINE. [Concomitant]
     Active Substance: PROCHLORPERAZINE
     Dosage: 1 DF, BID
     Dates: start: 20210714, end: 20210722
  11. NITROFURANTOIN. [Concomitant]
     Active Substance: NITROFURANTOIN
     Dosage: 10 MLS (50 MG) ONCE DAILY
     Dates: start: 20210827
  12. HYDROCORTISONE. [Concomitant]
     Active Substance: HYDROCORTISONE
     Dosage: 1 DF, BID
     Dates: start: 20210827, end: 20210910
  13. CEFALEXIN [Concomitant]
     Active Substance: CEPHALEXIN
     Dosage: 1 DOSAGE FORM  PER DAY
     Dates: start: 20201015, end: 20210906
  14. CIPROFLOXACIN. [Concomitant]
     Active Substance: CIPROFLOXACIN
     Dosage: 10 ML, BID
     Dates: start: 20210727, end: 20210802
  15. DOCUSATE SODIUM. [Concomitant]
     Active Substance: DOCUSATE SODIUM
     Dosage: 2X5ML SPOON 3 TIMES/DAY F
     Dates: start: 20210906
  16. MST CONTINUS [Concomitant]
     Active Substance: MORPHINE SULFATE
     Dosage: 1 DF, Q12H
     Dates: start: 20210112, end: 20210712
  17. SENNA [Concomitant]
     Active Substance: SENNA LEAF\SENNOSIDES\SENNOSIDES A AND B
     Dosage: 1 OR 2 AT NIGHT
     Dates: start: 20210628, end: 20210906
  18. LANSOPRAZOLE. [Concomitant]
     Active Substance: LANSOPRAZOLE
     Dosage: 1 DF, BID
     Dates: start: 20201014
  19. METOCLOPRAMIDE. [Concomitant]
     Active Substance: METOCLOPRAMIDE
     Dosage: 1 DF AS NECESSARY 3 TIMES A DAY
     Dates: start: 20210630, end: 20210707
  20. OXYBUTYNIN. [Concomitant]
     Active Substance: OXYBUTYNIN CHLORIDE
     Dosage: 5 ML, BID
     Dates: start: 20210709, end: 20210724
  21. PREDNISOLONE. [Concomitant]
     Active Substance: PREDNISOLONE
     Dosage: 4 DF ONCE DAILY
     Dates: start: 20210821, end: 20210824
  22. TRAMADOL. [Concomitant]
     Active Substance: TRAMADOL
     Dosage: 1 OR 2 EVERY 4?6 HRS
     Dates: start: 20210712, end: 20210809

REACTIONS (3)
  - Dermatitis bullous [Recovered/Resolved]
  - Rash pustular [Unknown]
  - Off label use [Unknown]

NARRATIVE: CASE EVENT DATE: 20210828
